FAERS Safety Report 5519097-0 (Version None)
Quarter: 2007Q4

REPORT INFORMATION
  Report Type: 
  Country: None (occurrence: None)
  Receive Date: 20071114
  Receipt Date: 20071029
  Transmission Date: 20080405
  Serious: Yes (Other)
  Sender: FDA-Public Use
  Company Number: DSA_30819_2007

PATIENT
  Sex: Female
  Weight: 59 kg

DRUGS (1)
  1. LORAX /00273201/ (LORAX - LORAZEPAM) 2 MG (NOT SPECIFIED) [Suspect]
     Dosage: (30 MG 1X NOT THE PRESCRIBED AMOUNT ORAL)
     Route: 048
     Dates: start: 20071020, end: 20071020

REACTIONS (6)
  - DRUG EXPOSURE DURING PREGNANCY [None]
  - INTENTIONAL OVERDOSE [None]
  - PREGNANCY [None]
  - SOMNOLENCE [None]
  - SUICIDE ATTEMPT [None]
  - VOMITING [None]
